FAERS Safety Report 20294932 (Version 1)
Quarter: 2022Q1

REPORT INFORMATION
  Report Type: Report from Study
  Country: UY (occurrence: UY)
  Receive Date: 20220104
  Receipt Date: 20220104
  Transmission Date: 20220423
  Serious: Yes (Other)
  Sender: FDA-Public Use
  Company Number: UY-ABBVIE-21K-168-4108223-00

PATIENT
  Age: 44 Year
  Sex: Female

DRUGS (1)
  1. HUMIRA [Suspect]
     Active Substance: ADALIMUMAB
     Indication: Crohn^s disease
     Route: 058
     Dates: start: 20210513

REACTIONS (3)
  - Complication associated with device [Recovered/Resolved]
  - Fibromyalgia [Not Recovered/Not Resolved]
  - Renal pain [Not Recovered/Not Resolved]

NARRATIVE: CASE EVENT DATE: 20210901
